FAERS Safety Report 7084631-9 (Version None)
Quarter: 2010Q4

REPORT INFORMATION
  Report Type: 
  Country: None (occurrence: None)
  Receive Date: 20101104
  Receipt Date: 20101025
  Transmission Date: 20110411
  Serious: Yes (Hospitalization, Other)
  Sender: FDA-Public Use
  Company Number: PHHY2009CA31242

PATIENT
  Sex: Male

DRUGS (5)
  1. SANDOSTATIN LAR [Suspect]
     Indication: NEUROENDOCRINE TUMOUR
     Dosage: 30 MG, EVERY 4 WEEKS
     Route: 030
     Dates: start: 20090706
  2. SANDOSTATIN LAR [Suspect]
     Dosage: 30 MG, QMO
     Route: 030
  3. IRON [Concomitant]
     Dosage: UNK
  4. METFORMIN [Concomitant]
  5. RADIATION THERAPY [Concomitant]

REACTIONS (21)
  - ABDOMINAL PAIN UPPER [None]
  - AGITATION [None]
  - ARTHRALGIA [None]
  - ARTHRITIS [None]
  - BLOOD PRESSURE INCREASED [None]
  - DECREASED APPETITE [None]
  - DRUG DOSE OMISSION [None]
  - DYSGEUSIA [None]
  - DYSPNOEA [None]
  - FLUSHING [None]
  - HEART RATE DECREASED [None]
  - HYPERGLYCAEMIA [None]
  - HYPOHIDROSIS [None]
  - NAUSEA [None]
  - NERVE COMPRESSION [None]
  - PAIN [None]
  - RESTLESSNESS [None]
  - SINUS HEADACHE [None]
  - STRESS [None]
  - TUMOUR COMPRESSION [None]
  - WEIGHT DECREASED [None]
